FAERS Safety Report 10066022 (Version 1)
Quarter: 2014Q2

REPORT INFORMATION
  Report Type: Spontaneous
  Country: US (occurrence: US)
  Receive Date: 20140408
  Receipt Date: 20140408
  Transmission Date: 20141212
  Serious: No
  Sender: FDA-Public Use
  Company Number: US-PFIZER INC-2014097091

PATIENT
  Age: 57 Year
  Sex: Female
  Weight: 54.42 kg

DRUGS (2)
  1. NICOTROL INHALER [Suspect]
     Indication: SMOKING CESSATION THERAPY
     Dosage: UNK, 6X/DAY
     Dates: start: 20140122
  2. CELEXA [Concomitant]
     Indication: BIPOLAR DISORDER
     Dosage: 40 MG, DAILY

REACTIONS (5)
  - Irritability [Unknown]
  - Agitation [Unknown]
  - Onychophagia [Unknown]
  - Nervousness [Unknown]
  - Weight increased [Unknown]
